FAERS Safety Report 24204959 (Version 1)
Quarter: 2024Q3

REPORT INFORMATION
  Report Type: Spontaneous
  Country: US (occurrence: US)
  Receive Date: 20240813
  Receipt Date: 20240813
  Transmission Date: 20241017
  Serious: No
  Sender: NOVARTIS
  Company Number: US-002147023-NVSC2024US163918

PATIENT
  Age: 60 Year
  Sex: Male
  Weight: 83.91 kg

DRUGS (1)
  1. VALSARTAN [Suspect]
     Active Substance: VALSARTAN
     Indication: Product used for unknown indication
     Dosage: UNK (320/25)
     Route: 065

REACTIONS (2)
  - Blood pressure abnormal [Unknown]
  - Weight decreased [Unknown]
